FAERS Safety Report 15017702 (Version 1)
Quarter: 2018Q2

REPORT INFORMATION
  Report Type: Spontaneous
  Country: US (occurrence: US)
  Receive Date: 20180615
  Receipt Date: 20180615
  Transmission Date: 20180711
  Serious: No
  Sender: FDA-Public Use
  Company Number: US-BAYER-2018-107523

PATIENT
  Sex: Female

DRUGS (2)
  1. DROXIDOPA [Concomitant]
     Active Substance: DROXIDOPA
  2. CLARITIN [Suspect]
     Active Substance: LORATADINE
     Dosage: UNK

REACTIONS (3)
  - Vision blurred [None]
  - Fatigue [None]
  - Depressed mood [None]
